FAERS Safety Report 10156423 (Version 1)
Quarter: 2014Q2

REPORT INFORMATION
  Report Type: Spontaneous
  Country: US (occurrence: US)
  Receive Date: 20140507
  Receipt Date: 20140507
  Transmission Date: 20141212
  Serious: Yes (Other)
  Sender: FDA-Public Use
  Company Number: US-RB-065505-14

PATIENT
  Age: 42 Year
  Sex: Female

DRUGS (1)
  1. MUCINEX D [Suspect]
     Indication: DRUG ABUSE
     Dosage: 3 TO 4 GRAMS DAILY
     Route: 048

REACTIONS (9)
  - Hydronephrosis [Unknown]
  - Nephrolithiasis [Unknown]
  - Renal tubular acidosis [Unknown]
  - Tachycardia [Unknown]
  - Hydroureter [Unknown]
  - Flank pain [Unknown]
  - Drug abuse [Unknown]
  - Overdose [Unknown]
  - Incorrect drug administration duration [Unknown]
